FAERS Safety Report 9847367 (Version 2)
Quarter: 2014Q1

REPORT INFORMATION
  Report Type: Spontaneous
  Country: US (occurrence: US)
  Receive Date: 20140127
  Receipt Date: 20140127
  Transmission Date: 20141002
  Serious: No
  Sender: FDA-Public Use
  Company Number: US-MYLANLABS-2013S1010971

PATIENT
  Sex: Female

DRUGS (1)
  1. LETROZOLE TABLETS, USP, 2.5MG; MFR/LABLER: SUN PHARM [Suspect]
     Route: 048
     Dates: end: 20130502

REACTIONS (2)
  - Weight decreased [Not Recovered/Not Resolved]
  - Blood sodium decreased [Not Recovered/Not Resolved]
